FAERS Safety Report 5912622-7 (Version None)
Quarter: 2008Q4

REPORT INFORMATION
  Report Type: 
  Country: None (occurrence: None)
  Receive Date: 20081008
  Receipt Date: 20080925
  Transmission Date: 20090506
  Serious: Yes (Hospitalization)
  Sender: FDA-Public Use
  Company Number: CA-ELI_LILLY_AND_COMPANY-CA200809006089

PATIENT
  Age: 58 Year
  Sex: Female

DRUGS (12)
  1. FORTEO [Suspect]
     Indication: OSTEOPOROSIS
     Dosage: 20 UG, DAILY (1/D)
     Route: 058
     Dates: start: 20071119, end: 20080608
  2. DURAGESIC-100 [Concomitant]
     Route: 062
  3. OXYCOCET [Concomitant]
  4. LORAZEPAM [Concomitant]
  5. TRAZODONE HCL [Concomitant]
  6. PREVACID [Concomitant]
  7. PREDNISONE TAB [Concomitant]
  8. CELEXA [Concomitant]
  9. VENTOLIN                                /SCH/ [Concomitant]
  10. BECLOFORTE [Concomitant]
  11. SPIRIVA [Concomitant]
  12. COLACE [Concomitant]

REACTIONS (1)
  - SURGERY [None]
